FAERS Safety Report 6192380-4 (Version None)
Quarter: 2009Q2

REPORT INFORMATION
  Report Type: 
  Country: None (occurrence: None)
  Receive Date: 20090518
  Receipt Date: 20090515
  Transmission Date: 20091009
  Serious: Yes (Other)
  Sender: FDA-Public Use
  Company Number: FR-WYE-G03684609

PATIENT
  Sex: Female
  Weight: 53 kg

DRUGS (1)
  1. GEMTUZUMAB OZOGAMICIN [Suspect]
     Indication: ACUTE MYELOID LEUKAEMIA
     Dosage: 13.6 MG
     Route: 042
     Dates: start: 20081118, end: 20081118

REACTIONS (3)
  - DYSPNOEA [None]
  - HYPERTENSION [None]
  - OXYGEN SATURATION DECREASED [None]
